FAERS Safety Report 13851943 (Version 1)
Quarter: 2017Q3

REPORT INFORMATION
  Report Type: Spontaneous
  Country: US (occurrence: US)
  Receive Date: 20170809
  Receipt Date: 20170809
  Transmission Date: 20171127
  Serious: Yes (Hospitalization, Other)
  Sender: FDA-Public Use
  Company Number: US-BAUSCH-BL-2017-023240

PATIENT
  Sex: Female

DRUGS (2)
  1. UCERIS [Suspect]
     Active Substance: BUDESONIDE
     Indication: COLITIS ULCERATIVE
     Route: 065
     Dates: start: 201706
  2. UCERIS [Suspect]
     Active Substance: BUDESONIDE
     Indication: DIVERTICULITIS

REACTIONS (3)
  - Atrial fibrillation [Unknown]
  - Hiatus hernia [Unknown]
  - Colitis [Unknown]

NARRATIVE: CASE EVENT DATE: 2017
